FAERS Safety Report 6197169-8 (Version None)
Quarter: 2009Q2

REPORT INFORMATION
  Report Type: 
  Country: None (occurrence: None)
  Receive Date: 20090520
  Receipt Date: 20090428
  Transmission Date: 20091009
  Serious: Yes (Hospitalization)
  Sender: FDA-Public Use
  Company Number: DE-GENENTECH-275771

PATIENT
  Sex: Female

DRUGS (3)
  1. BEVACIZUMAB [Suspect]
     Indication: OVARIAN EPITHELIAL CANCER
     Dosage: 518 MG, UNK
     Route: 042
     Dates: start: 20080922
  2. CARBOPLATIN [Suspect]
     Indication: OVARIAN EPITHELIAL CANCER
     Dosage: 602 MG, UNK
     Route: 042
     Dates: start: 20080922
  3. PACLITAXEL [Suspect]
     Indication: OVARIAN EPITHELIAL CANCER
     Dosage: 308 MG, UNK
     Route: 042
     Dates: start: 20080922

REACTIONS (1)
  - VERTIGO [None]
